FAERS Safety Report 7860857-9 (Version None)
Quarter: 2011Q4

REPORT INFORMATION
  Report Type: 
  Country: None (occurrence: None)
  Receive Date: 20111026
  Receipt Date: 20111018
  Transmission Date: 20120403
  Serious: Yes (Disabling, Other)
  Sender: FDA-Public Use
  Company Number: ACO_24854_2011

PATIENT
  Age: 50 Year
  Sex: Female
  Weight: 53.5 kg

DRUGS (7)
  1. AMPYRA [Suspect]
     Indication: GAIT DISTURBANCE
     Dosage: 10MG, QD
     Dates: start: 20100901, end: 20100901
  2. VITAMINS NOS (VITAMINS NOS) [Concomitant]
  3. ERGOCALCIFEROL [Concomitant]
  4. FISH OIL (FISH OIL) [Concomitant]
  5. OMEGA 3 /06852001/ (DOCOSAHEXAENOIC ACID, EICOSAPENTAENOIC ACID) [Concomitant]
  6. COPAXONE [Concomitant]
  7. MULTIVITAMIN  /0831701/ (VITAMIN NOS) [Concomitant]

REACTIONS (3)
  - GAIT DISTURBANCE [None]
  - MOVEMENT DISORDER [None]
  - BALANCE DISORDER [None]
